FAERS Safety Report 20232649 (Version 1)
Quarter: 2021Q4

REPORT INFORMATION
  Report Type: Spontaneous
  Country: US (occurrence: None)
  Receive Date: 20211223
  Receipt Date: 20211223
  Transmission Date: 20220303
  Serious: Yes (Death)
  Sender: FDA-Public Use
  Company Number: None

PATIENT
  Age: 88 Year
  Sex: Male

DRUGS (4)
  1. NUCALA [Suspect]
     Active Substance: MEPOLIZUMAB
     Indication: Respiration abnormal
     Dosage: FREQUENCY : MONTHLY;?
     Route: 058
     Dates: start: 20210714, end: 20211218
  2. LASIX TAB [Concomitant]
  3. METOPROL TAR TAB [Concomitant]
  4. POTASSIUM POW CHLORIDE [Concomitant]

REACTIONS (1)
  - Death [None]

NARRATIVE: CASE EVENT DATE: 20211218
